FAERS Safety Report 8445590-7 (Version None)
Quarter: 2012Q2

REPORT INFORMATION
  Report Type: 
  Country: None (occurrence: None)
  Receive Date: 20120618
  Receipt Date: 20120608
  Transmission Date: 20120825
  Serious: Yes (Hospitalization, Other)
  Sender: FDA-Public Use
  Company Number: SE-JNJFOC-20101209191

PATIENT
  Age: 69 Year
  Sex: Female

DRUGS (9)
  1. SIMVASTATIN [Concomitant]
  2. TENORMIN [Concomitant]
  3. REMICADE [Suspect]
     Route: 042
     Dates: start: 20041001
  4. ASPIRIN [Concomitant]
  5. METHOTREXATE [Suspect]
     Indication: RHEUMATOID ARTHRITIS
     Route: 048
     Dates: start: 20030901, end: 20100318
  6. IMDUR [Concomitant]
  7. NAPROXEN [Concomitant]
  8. REMICADE [Suspect]
     Indication: RHEUMATOID ARTHRITIS
     Route: 042
     Dates: end: 20100824
  9. METHOTREXATE SODIUM [Suspect]
     Indication: RHEUMATOID ARTHRITIS
     Dates: start: 20100318, end: 20100901

REACTIONS (3)
  - NEUROENDOCRINE CARCINOMA OF THE SKIN [None]
  - IVTH NERVE PARALYSIS [None]
  - METASTASES TO BONE MARROW [None]
